FAERS Safety Report 7202428-3 (Version None)
Quarter: 2010Q4

REPORT INFORMATION
  Report Type: 
  Country: None (occurrence: None)
  Receive Date: 20101229
  Receipt Date: 20101222
  Transmission Date: 20110411
  Serious: Yes (Other)
  Sender: FDA-Public Use
  Company Number: A0901408A

PATIENT
  Sex: Female

DRUGS (1)
  1. ARIXTRA [Suspect]
     Route: 065

REACTIONS (1)
  - ARTERIOVENOUS FISTULA THROMBOSIS [None]
